FAERS Safety Report 15431932 (Version 2)
Quarter: 2018Q4

REPORT INFORMATION
  Report Type: Spontaneous
  Country: PR (occurrence: PR)
  Receive Date: 20180926
  Receipt Date: 20181016
  Transmission Date: 20190204
  Serious: No
  Sender: FDA-Public Use
  Company Number: PR-PFIZER INC-2018384865

PATIENT
  Age: 74 Year
  Sex: Female
  Weight: 55.33 kg

DRUGS (1)
  1. IBRANCE [Suspect]
     Active Substance: PALBOCICLIB
     Indication: BREAST CANCER
     Dosage: 75 MG, DAILY
     Route: 048
     Dates: start: 20180904

REACTIONS (2)
  - White blood cell count decreased [Unknown]
  - Abdominal discomfort [Unknown]
